FAERS Safety Report 25412795 (Version 4)
Quarter: 2025Q3

REPORT INFORMATION
  Report Type: Report from Study
  Country: US (occurrence: US)
  Receive Date: 20250609
  Receipt Date: 20250708
  Transmission Date: 20251021
  Serious: Yes (Other)
  Sender: ACADIA PHARMACEUTICALS
  Company Number: US-ACADIA PHARMACEUTICALS INC.-ACA-2025-TRF-006646

PATIENT
  Sex: Female

DRUGS (3)
  1. DAYBUE [Suspect]
     Active Substance: TROFINETIDE
     Indication: Rett syndrome
     Route: 065
  2. DAYBUE [Suspect]
     Active Substance: TROFINETIDE
     Dosage: 50 MILLILITER, BID
     Route: 048
     Dates: end: 20250623
  3. DAYBUE [Suspect]
     Active Substance: TROFINETIDE
     Dosage: 25 MILLILITER, BID
     Route: 048

REACTIONS (9)
  - Self-destructive behaviour [Unknown]
  - Pneumonia [Not Recovered/Not Resolved]
  - Seizure [Unknown]
  - Scratch [Unknown]
  - Drooling [Unknown]
  - Breath holding [Not Recovered/Not Resolved]
  - Abnormal behaviour [Unknown]
  - Diarrhoea [Unknown]
  - Underdose [Not Recovered/Not Resolved]
